FAERS Safety Report 7424059-2 (Version None)
Quarter: 2011Q2

REPORT INFORMATION
  Report Type: 
  Country: None (occurrence: None)
  Receive Date: 20110419
  Receipt Date: 20080407
  Transmission Date: 20111010
  Serious: Yes (Death, Other)
  Sender: FDA-Public Use
  Company Number: US-BAYER-200826599NA

PATIENT
  Sex: Male
  Weight: 92.971 kg

DRUGS (19)
  1. TRASYLOL [Suspect]
     Indication: AORTIC DISSECTION
     Dosage: 200 ML, LOADING DOSE
     Route: 042
     Dates: start: 20050319, end: 20050319
  2. ESMOLOL [Concomitant]
     Dosage: UNK
     Route: 042
     Dates: start: 20050319, end: 20050319
  3. CARDENE [Concomitant]
     Indication: HYPOTENSION
     Dosage: UNK
     Dates: start: 20050319
  4. TRASYLOL [Suspect]
     Indication: AORTIC ANEURYSM
  5. RED BLOOD CELLS [Concomitant]
     Dosage: 2 UNITS
     Dates: start: 20050319
  6. TRASYLOL [Suspect]
     Indication: CORONARY ARTERY BYPASS
  7. SOLU-MEDROL [Concomitant]
     Dosage: UNK
     Dates: start: 20050319, end: 20050319
  8. VANCOMYCIN [Concomitant]
     Dosage: 1 G, UNK
     Route: 042
     Dates: start: 20050319, end: 20050320
  9. TORADOL [Concomitant]
  10. TRASYLOL [Suspect]
     Indication: AORTIC VALVE REPAIR
     Dosage: 50 ML, Q1HR
     Route: 041
     Dates: start: 20050319, end: 20050319
  11. NIPRIDE [Concomitant]
     Indication: MALIGNANT HYPERTENSION
     Dosage: UNK
     Route: 042
     Dates: start: 20050319, end: 20050319
  12. MORPHINE [Concomitant]
     Dosage: UNK
     Dates: start: 20050309
  13. ZANTAC [Concomitant]
     Dosage: UNK
     Route: 042
     Dates: start: 20050319
  14. PRIMACOR [Concomitant]
     Indication: HYPOTENSION
     Dosage: UNK
     Route: 042
     Dates: start: 20050319
  15. FRESH FROZEN PLASMA [Concomitant]
     Dosage: 4 UNITS
     Dates: start: 20050319
  16. MANNITOL [Concomitant]
     Dosage: CARDIOPULMONARY BYPASS
     Dates: start: 20050319, end: 20050319
  17. ZINACEF [Concomitant]
     Dosage: 1 G, UNK
     Route: 042
     Dates: start: 20050319
  18. PROTAMINE SULFATE [Concomitant]
     Dosage: 50 + 160 MG
     Dates: start: 20050319, end: 20050319
  19. ENALAPRIL MALEATE [Concomitant]

REACTIONS (11)
  - DEPRESSION [None]
  - ANHEDONIA [None]
  - PAIN [None]
  - DEATH [None]
  - RENAL FAILURE [None]
  - CEREBROVASCULAR ACCIDENT [None]
  - INJURY [None]
  - ANXIETY [None]
  - UNEVALUABLE EVENT [None]
  - FEAR [None]
  - ADVERSE EVENT [None]
